FAERS Safety Report 9657835 (Version 1)
Quarter: 2013Q4

REPORT INFORMATION
  Report Type: Spontaneous
  Country: US (occurrence: US)
  Receive Date: 20131030
  Receipt Date: 20131030
  Transmission Date: 20140711
  Serious: No
  Sender: FDA-Public Use
  Company Number: US-009507513-1310USA012605

PATIENT
  Age: 79 Year
  Sex: Male

DRUGS (2)
  1. REMERON SOLTAB [Suspect]
     Dosage: 30 MG, PER DAY
     Route: 048
     Dates: start: 20131022, end: 20131023
  2. REMERON SOLTAB [Suspect]
     Dosage: 15 MG, PER DAY
     Route: 048
     Dates: end: 200910

REACTIONS (3)
  - Logorrhoea [Unknown]
  - Fatigue [Unknown]
  - Sedation [Unknown]
